FAERS Safety Report 6178217-8 (Version None)
Quarter: 2009Q2

REPORT INFORMATION
  Report Type: 
  Country: None (occurrence: None)
  Receive Date: 20090504
  Receipt Date: 20090421
  Transmission Date: 20091009
  Serious: Yes (Other)
  Sender: FDA-Public Use
  Company Number: JP-ROCHE-616176

PATIENT
  Sex: Female
  Weight: 16 kg

DRUGS (6)
  1. TAMIFLU [Suspect]
     Indication: INFLUENZA
     Dosage: DRUG REPORTED AS-TAMIFLU DRY SYRUP 3%.
     Route: 048
     Dates: start: 20090125, end: 20090125
  2. TAMIFLU [Suspect]
     Route: 048
     Dates: start: 20090126, end: 20090126
  3. TAMIFLU [Suspect]
     Route: 048
     Dates: start: 20090127, end: 20090127
  4. PERIACTIN [Concomitant]
     Route: 048
     Dates: start: 20090125, end: 20090128
  5. MUCODYNE [Concomitant]
     Dosage: DRUG NAME REPORTED AS: MUCODYNE DS
     Route: 048
     Dates: start: 20090125, end: 20090128
  6. MEDICON [Concomitant]
     Route: 048
     Dates: start: 20090125, end: 20090128

REACTIONS (1)
  - DELIRIUM FEBRILE [None]
